FAERS Safety Report 16544570 (Version 1)
Quarter: 2019Q3

REPORT INFORMATION
  Report Type: Spontaneous
  Country: DE (occurrence: DE)
  Receive Date: 20190709
  Receipt Date: 20190709
  Transmission Date: 20191004
  Serious: Yes (Other)
  Sender: FDA-Public Use
  Company Number: DE-B.I. PHARMACEUTICALS,INC./RIDGEFIELD-2019-12-002065

PATIENT
  Age: 78 Year
  Sex: Female

DRUGS (6)
  1. SIFROL [Suspect]
     Active Substance: PRAMIPEXOLE
     Indication: PARKINSON^S DISEASE
     Dosage: MODIFIED-RELEASE
     Route: 065
  2. SIFROL [Suspect]
     Active Substance: PRAMIPEXOLE
     Dosage: MODIFIED-RELEASE
     Route: 065
  3. LEVODOPA/ BENSERAZIDE [Suspect]
     Active Substance: BENSERAZIDE\LEVODOPA
     Indication: PARKINSON^S DISEASE
     Route: 065
  4. LEVODOPA [Suspect]
     Active Substance: LEVODOPA
     Indication: PARKINSON^S DISEASE
     Dosage: MODIFIED RELEASE, AT NIGHT
     Route: 065
  5. ENTACAPONE. [Suspect]
     Active Substance: ENTACAPONE
     Indication: PARKINSON^S DISEASE
     Route: 065
  6. LEVODOPA/CARBIDOPA [Suspect]
     Active Substance: CARBIDOPA\LEVODOPA
     Indication: PARKINSON^S DISEASE
     Route: 065

REACTIONS (7)
  - Dyskinesia [Unknown]
  - Impulse-control disorder [Unknown]
  - On and off phenomenon [Recovered/Resolved]
  - Fatigue [Unknown]
  - Stereotypy [Unknown]
  - Camptocormia [Unknown]
  - Pleurothotonus [Unknown]
